FAERS Safety Report 10384569 (Version 1)
Quarter: 2014Q3

REPORT INFORMATION
  Report Type: Spontaneous
  Country: US (occurrence: None)
  Receive Date: 20140813
  Receipt Date: 20140813
  Transmission Date: 20150326
  Serious: Yes (Other)
  Sender: FDA-Public Use
  Company Number: None

PATIENT
  Age: 67 Year
  Sex: Female
  Weight: 104.78 kg

DRUGS (10)
  1. LEVOTHYROXINE [Concomitant]
     Active Substance: LEVOTHYROXINE
  2. MELOXICAM. [Concomitant]
     Active Substance: MELOXICAM
  3. TYLENOL [Concomitant]
     Active Substance: ACETAMINOPHEN
  4. FISH OIL [Concomitant]
     Active Substance: FISH OIL
  5. ZEGERID [Concomitant]
     Active Substance: OMEPRAZOLE\SODIUM BICARBONATE
  6. CENTRUM SILVER [Concomitant]
     Active Substance: VITAMINS
  7. CIPRO [Suspect]
     Active Substance: CIPROFLOXACIN HYDROCHLORIDE
     Indication: INFECTION
     Dosage: 2 PER DAY  TWICE A DAY  BY MOUTH
     Route: 048
     Dates: end: 20140731
  8. MULTI VITA [Concomitant]
  9. VITAMIN D3 [Suspect]
     Active Substance: CHOLECALCIFEROL
  10. AZULFIDINE [Concomitant]
     Active Substance: SULFASALAZINE

REACTIONS (3)
  - Pruritus [None]
  - Headache [None]
  - Pyrexia [None]

NARRATIVE: CASE EVENT DATE: 20140730
